FAERS Safety Report 20798931 (Version 3)
Quarter: 2022Q4

REPORT INFORMATION
  Report Type: Report from Study
  Country: DE (occurrence: DE)
  Receive Date: 20220507
  Receipt Date: 20221108
  Transmission Date: 20230112
  Serious: Yes (Hospitalization, Other)
  Sender: FDA-Public Use
  Company Number: DE-BRISTOL-MYERS SQUIBB COMPANY-2022-029632

PATIENT
  Age: 68 Year
  Sex: Male

DRUGS (20)
  1. NIVOLUMAB [Suspect]
     Active Substance: NIVOLUMAB
     Indication: Malignant melanoma
     Dosage: [TOTAL NIVOLUMAB DOSE DELIVERED DURING THIS INFUSION]: 106
     Route: 065
     Dates: start: 20170816
  2. NIVOLUMAB [Suspect]
     Active Substance: NIVOLUMAB
     Indication: Lung neoplasm malignant
     Dosage: [TOTAL NIVOLUMAB DOSE DELIVERED DURING THIS INFUSION]: 102
     Route: 065
     Dates: start: 20170918, end: 20171010
  3. NIVOLUMAB [Suspect]
     Active Substance: NIVOLUMAB
     Dosage: [TOTAL NIVOLUMAB DOSE DELIVERED DURING THIS INFUSION]: 291
     Route: 065
     Dates: start: 20171204, end: 20171215
  4. NIVOLUMAB [Suspect]
     Active Substance: NIVOLUMAB
     Dosage: [TOTAL NIVOLUMAB DOSE DELIVERED DURING THIS INFUSION]: 300
     Route: 065
     Dates: start: 20171103, end: 20180209
  5. NIVOLUMAB [Suspect]
     Active Substance: NIVOLUMAB
     Dosage: [TOTAL NIVOLUMAB DOSE DELIVERED DURING THIS INFUSION]: 312
     Route: 065
     Dates: start: 20180223
  6. NIVOLUMAB [Suspect]
     Active Substance: NIVOLUMAB
     Dosage: [TOTAL NIVOLUMAB DOSE DELIVERED DURING THIS INFUSION]: 315
     Route: 065
     Dates: start: 20180308
  7. NIVOLUMAB [Suspect]
     Active Substance: NIVOLUMAB
     Dosage: [TOTAL NIVOLUMAB DOSE DELIVERED DURING THIS INFUSION]: 309
     Route: 065
     Dates: start: 20180326
  8. NIVOLUMAB [Suspect]
     Active Substance: NIVOLUMAB
     Dosage: [TOTAL NIVOLUMAB DOSE DELIVERED DURING THIS INFUSION]: 480
     Route: 065
     Dates: start: 20180410
  9. NIVOLUMAB [Suspect]
     Active Substance: NIVOLUMAB
     Dosage: [TOTAL NIVOLUMAB DOSE DELIVERED DURING THIS INFUSION]: 288
     Route: 065
     Dates: start: 20180522
  10. NIVOLUMAB [Suspect]
     Active Substance: NIVOLUMAB
     Dosage: [TOTAL NIVOLUMAB DOSE DELIVERED DURING THIS INFUSION]: 240
     Route: 065
     Dates: start: 20180606
  11. NIVOLUMAB [Suspect]
     Active Substance: NIVOLUMAB
     Dosage: [TOTAL NIVOLUMAB DOSE DELIVERED DURING THIS INFUSION]: 480
     Route: 065
     Dates: start: 20180829, end: 20190508
  12. IPILIMUMAB [Suspect]
     Active Substance: IPILIMUMAB
     Indication: Malignant melanoma
     Dosage: [TOTAL IPILIMUMAB DOSE DELIVERED DURING THIS INFUSION]: 318
     Route: 065
     Dates: start: 20170816
  13. IPILIMUMAB [Suspect]
     Active Substance: IPILIMUMAB
     Indication: Lung neoplasm malignant
     Dosage: [TOTAL IPILIMUMAB DOSE DELIVERED DURING THIS INFUSION]: 306
     Route: 065
     Dates: start: 20170918
  14. IPILIMUMAB [Suspect]
     Active Substance: IPILIMUMAB
     Dosage: [TOTAL IPILIMUMAB DOSE DELIVERED DURING THIS INFUSION]: 312
     Route: 065
     Dates: start: 20171010
  15. PREDNISOLONE [Concomitant]
     Active Substance: PREDNISOLONE
     Indication: Product used for unknown indication
     Route: 048
     Dates: start: 20171026, end: 20171215
  16. PANTOPRAZOLE SODIUM [Concomitant]
     Active Substance: PANTOPRAZOLE SODIUM
     Indication: Product used for unknown indication
     Route: 065
  17. FINASTERIDE [Concomitant]
     Active Substance: FINASTERIDE
     Indication: Product used for unknown indication
     Route: 065
  18. FINASTERIDE [Concomitant]
     Active Substance: FINASTERIDE
     Indication: Product used for unknown indication
     Route: 065
  19. LEVOTHYROXINE SODIUM [Concomitant]
     Active Substance: LEVOTHYROXINE SODIUM
     Indication: Product used for unknown indication
     Route: 065
  20. Calciac [Concomitant]
     Indication: Product used for unknown indication
     Route: 065

REACTIONS (2)
  - Immune-mediated thyroiditis [Recovered/Resolved]
  - Pancytopenia [Recovered/Resolved]

NARRATIVE: CASE EVENT DATE: 20170831
